FAERS Safety Report 6130382-4 (Version None)
Quarter: 2009Q1

REPORT INFORMATION
  Report Type: 
  Country: None (occurrence: None)
  Receive Date: 20090324
  Receipt Date: 20090319
  Transmission Date: 20090719
  Serious: No
  Sender: FDA-Public Use
  Company Number: US-B.I. PHARMACEUTICALS,INC./RIDGEFIELD-2009-BP-00953BP

PATIENT
  Age: 63 Year
  Sex: Male

DRUGS (5)
  1. MICARDIS [Suspect]
     Indication: HYPERTENSION
     Dosage: 80MG
     Route: 048
     Dates: start: 20061003
  2. ASPIRIN [Concomitant]
     Dosage: 81MG
  3. ALLOPURINOL [Concomitant]
  4. MULTI-VITAMIN [Concomitant]
  5. FISH OIL [Concomitant]

REACTIONS (2)
  - EJECTION FRACTION ABNORMAL [None]
  - HEART RATE DECREASED [None]
